FAERS Safety Report 9003194 (Version 2)
Quarter: 2013Q2

REPORT INFORMATION
  Report Type: Spontaneous
  Country: US (occurrence: US)
  Receive Date: 20130108
  Receipt Date: 20130405
  Transmission Date: 20140414
  Serious: Yes (Death)
  Sender: FDA-Public Use
  Company Number: US-BRISTOL-MYERS SQUIBB COMPANY-17254657

PATIENT
  Sex: Male

DRUGS (1)
  1. YERVOY [Suspect]
     Indication: METASTATIC MALIGNANT MELANOMA
     Dosage: STRENGHT:50MG/10ML?200MG/40ML ,NDC:00003-2328-22?LOT 919024,918693?EXP.10/2014?1X200MG?2X50MG
     Route: 042
     Dates: start: 20121008, end: 20121008

REACTIONS (1)
  - Intracranial tumour haemorrhage [Fatal]
